FAERS Safety Report 19399919 (Version 1)
Quarter: 2021Q2

REPORT INFORMATION
  Report Type: Spontaneous
  Country: US (occurrence: US)
  Receive Date: 20210610
  Receipt Date: 20210610
  Transmission Date: 20210717
  Serious: Yes (Life-Threatening, Hospitalization, Other)
  Sender: FDA-Public Use
  Company Number: US-RECORDATI RARE DISEASE INC.-2021001840

PATIENT
  Age: 75 Year
  Sex: Male
  Weight: 102.95 kg

DRUGS (6)
  1. PRIMIDONE. [Concomitant]
     Active Substance: PRIMIDONE
     Indication: PRODUCT USED FOR UNKNOWN INDICATION
     Dosage: UNK
     Route: 065
  2. DILANTIN D.A. [Suspect]
     Active Substance: PHENYTOIN SODIUM
     Indication: PRODUCT USED FOR UNKNOWN INDICATION
     Dosage: 300 MG EVERY BEDTIME
     Route: 065
  3. VITAMIN B12 + FOLIC ACID [Concomitant]
     Active Substance: CYANOCOBALAMIN\FOLIC ACID
     Indication: PRODUCT USED FOR UNKNOWN INDICATION
     Dosage: UNK
     Route: 065
  4. DILANTIN D.A. [Suspect]
     Active Substance: PHENYTOIN SODIUM
     Dosage: 200 MILLIGRAM, BID
     Route: 065
  5. DIAMOX SANKEN [ACETAZOLAMIDE SODIUM] [Concomitant]
     Active Substance: ACETAZOLAMIDE SODIUM
     Indication: PRODUCT USED FOR UNKNOWN INDICATION
     Dosage: UNK
     Route: 065
  6. PEGANONE [Suspect]
     Active Substance: ETHOTOIN
     Indication: EPILEPSY
     Dosage: 250 MILLIGRAM, BID
     Route: 048
     Dates: start: 1981, end: 202101

REACTIONS (7)
  - Vertigo [Unknown]
  - Dizziness [Unknown]
  - Product availability issue [Not Recovered/Not Resolved]
  - Neuropathy peripheral [Unknown]
  - Drug withdrawal convulsions [Not Recovered/Not Resolved]
  - Fall [Unknown]
  - Gait disturbance [Unknown]

NARRATIVE: CASE EVENT DATE: 20210207
